FAERS Safety Report 19208164 (Version 2)
Quarter: 2021Q2

REPORT INFORMATION
  Report Type: Report from Study
  Country: US (occurrence: US)
  Receive Date: 20210503
  Receipt Date: 20210604
  Transmission Date: 20210717
  Serious: Yes (Death)
  Sender: FDA-Public Use
  Company Number: US-ASTRAZENECA-2021A382710

PATIENT
  Age: 23239 Day
  Sex: Female

DRUGS (1)
  1. IMFINZI [Suspect]
     Active Substance: DURVALUMAB
     Indication: LUNG NEOPLASM MALIGNANT
     Dosage: ONE DOSE OF IMFINZI
     Route: 042
     Dates: start: 20210422

REACTIONS (1)
  - Death [Fatal]

NARRATIVE: CASE EVENT DATE: 20210427
